FAERS Safety Report 11562250 (Version 1)
Quarter: 2015Q3

REPORT INFORMATION
  Report Type: Other
  Country: US (occurrence: US)
  Receive Date: 20150928
  Receipt Date: 20150928
  Transmission Date: 20151125
  Serious: Yes (Hospitalization)
  Sender: FDA-Public Use
  Company Number: US-TOLMAR INC.-1042359

PATIENT
  Age: 50 Year
  Sex: Female

DRUGS (1)
  1. IMIQUIMOD CREAM, 5% [Suspect]
     Active Substance: IMIQUIMOD
     Indication: BASAL CELL CARCINOMA
     Route: 061

REACTIONS (5)
  - Arthralgia [Unknown]
  - Off label use [Unknown]
  - Cutaneous lupus erythematosus [Recovered/Resolved]
  - Malaise [Unknown]
  - Pyrexia [Unknown]
